FAERS Safety Report 20489446 (Version 1)
Quarter: 2022Q1

REPORT INFORMATION
  Report Type: Spontaneous
  Country: US (occurrence: None)
  Receive Date: 20220217
  Receipt Date: 20220217
  Transmission Date: 20220423
  Serious: Yes (Other)
  Sender: FDA-Public Use
  Company Number: None

PATIENT
  Age: 65 Year
  Sex: Male
  Weight: 87.21 kg

DRUGS (6)
  1. CARBAMAZEPINE [Suspect]
     Active Substance: CARBAMAZEPINE
     Dosage: FREQUENCY : DAILY;?
     Route: 048
     Dates: start: 20211026, end: 20211227
  2. AMLODIPINE [Concomitant]
     Active Substance: AMLODIPINE BESYLATE
  3. DIAZEPAM [Concomitant]
     Active Substance: DIAZEPAM
  4. PERAMPANEL [Concomitant]
     Active Substance: PERAMPANEL
  5. LAMOTRIGINE [Concomitant]
     Active Substance: LAMOTRIGINE
  6. LISINOPRIL [Concomitant]
     Active Substance: LISINOPRIL

REACTIONS (7)
  - Head injury [None]
  - Haemorrhage intracranial [None]
  - Seizure [None]
  - Anticonvulsant drug level decreased [None]
  - Diplopia [None]
  - Gait disturbance [None]
  - Vision blurred [None]

NARRATIVE: CASE EVENT DATE: 20211207
